FAERS Safety Report 5615734-0 (Version None)
Quarter: 2008Q1

REPORT INFORMATION
  Report Type: 
  Country: None (occurrence: None)
  Receive Date: 20080201
  Receipt Date: 20080122
  Transmission Date: 20080703
  Serious: Yes (Death, Life-Threatening)
  Sender: FDA-Public Use
  Company Number: 070907-0000826

PATIENT
  Age: 40 Year
  Sex: Male

DRUGS (8)
  1. COSMEGEN [Suspect]
     Indication: GERM CELL CANCER
     Dosage: 2 MG; Q2W; IV
     Route: 042
     Dates: start: 19990427, end: 19990602
  2. CISPLATIN [Suspect]
     Indication: GERM CELL CANCER
     Dates: start: 19990428, end: 19990604
  3. ETOPOSIDE [Suspect]
     Indication: GERM CELL CANCER
     Dates: start: 19990427, end: 19990605
  4. METHOTREXATE [Suspect]
     Indication: GERM CELL CANCER
     Dates: start: 19990427, end: 19990603
  5. DEXTROSE WITH POTASSIUM BICARBONATE AND S [Concomitant]
  6. .. [Concomitant]
  7. FILGRASTIM [Concomitant]
  8. FOLINIC ACID [Concomitant]

REACTIONS (15)
  - BLOOD ALBUMIN DECREASED [None]
  - BLOOD BICARBONATE DECREASED [None]
  - BLOOD BILIRUBIN INCREASED [None]
  - BLOOD CALCIUM DECREASED [None]
  - BLOOD CHLORIDE INCREASED [None]
  - BLOOD CREATINE INCREASED [None]
  - BLOOD PHOSPHORUS DECREASED [None]
  - BLOOD POTASSIUM DECREASED [None]
  - FEBRILE NEUTROPENIA [None]
  - HAEMOGLOBIN DECREASED [None]
  - PLATELET COUNT DECREASED [None]
  - PROTEIN TOTAL DECREASED [None]
  - RESPIRATORY DISORDER [None]
  - SEPTIC SHOCK [None]
  - WHITE BLOOD CELL COUNT DECREASED [None]
